FAERS Safety Report 7374164-4 (Version None)
Quarter: 2011Q1

REPORT INFORMATION
  Report Type: 
  Country: None (occurrence: None)
  Receive Date: 20110317
  Receipt Date: 20101123
  Transmission Date: 20110831
  Serious: Yes (Hospitalization)
  Sender: FDA-Public Use
  Company Number: CA-021479

PATIENT
  Age: 75 Year
  Sex: Male

DRUGS (5)
  1. (CHLORAMBUCIL) [Suspect]
     Indication: CHRONIC LYMPHOCYTIC LEUKAEMIA
     Dosage: 10 MG/M2 AT DAYS 1-7 EVERY 28 DAYS; ORAL
     Route: 048
     Dates: start: 20101020
  2. PARACETAMOL [Concomitant]
  3. AZITHROMYCIN [Concomitant]
  4. CEFTRUAXONE [Concomitant]
  5. VANCOMYCIN [Concomitant]

REACTIONS (3)
  - HAEMOLYSIS [None]
  - HAEMATOCRIT DECREASED [None]
  - HAEMOGLOBIN DECREASED [None]
